FAERS Safety Report 12158780 (Version 1)
Quarter: 2016Q1

REPORT INFORMATION
  Report Type: Spontaneous
  Country: US (occurrence: None)
  Receive Date: 20160307
  Receipt Date: 20160307
  Transmission Date: 20160526
  Serious: Yes (Disabling, Other)
  Sender: FDA-Public Use
  Company Number: None

PATIENT
  Age: 68 Year
  Sex: Female
  Weight: 56.7 kg

DRUGS (6)
  1. LEVAQUIN [Suspect]
     Active Substance: LEVOFLOXACIN
     Indication: EAR INFECTION
     Route: 048
     Dates: start: 20140303, end: 20140313
  2. B-VITIMANS [Concomitant]
  3. MULTI-VITAMIN [Concomitant]
     Active Substance: .ALPHA.-TOCOPHEROL ACETATE, DL-\ASCORBIC ACID\CYANOCOBALAMIN\FLUORIDE ION\FOLIC ACID\NIACIN\PYRIDOXINE\RIBOFLAVIN\THIAMINE\VITAMIN A\VITAMIN D
  4. MICRONIZED PROGESTERONE GEL 5% (BIO IDENICAL HORMONES) [Concomitant]
  5. MELATONIN [Concomitant]
     Active Substance: MELATONIN
  6. TRIEST GEL [Concomitant]

REACTIONS (3)
  - Migraine [None]
  - Tendon injury [None]
  - Cataract [None]

NARRATIVE: CASE EVENT DATE: 201501
